FAERS Safety Report 9136771 (Version 1)
Quarter: 2013Q1

REPORT INFORMATION
  Report Type: Spontaneous
  Country: US (occurrence: US)
  Receive Date: 20130304
  Receipt Date: 20130304
  Transmission Date: 20140127
  Serious: No
  Sender: FDA-Public Use
  Company Number: US-ABBOTT-12P-163-0915738-00

PATIENT
  Age: 37 Year
  Sex: Male
  Weight: 83.99 kg

DRUGS (8)
  1. ANDROGEL 1% [Suspect]
     Indication: BLOOD TESTOSTERONE DECREASED
     Route: 061
     Dates: start: 2008, end: 201203
  2. ULTRAM [Concomitant]
     Indication: BACK PAIN
  3. LYRICA [Concomitant]
     Indication: BACK PAIN
  4. CYMBALTA [Concomitant]
     Indication: BACK PAIN
  5. SENOKOT [Concomitant]
     Indication: CONSTIPATION
  6. INDERAL [Concomitant]
     Indication: FAMILIAL TREMOR
  7. SINGULAR [Concomitant]
     Indication: ASTHMA
  8. PREVACID [Concomitant]
     Indication: GASTROOESOPHAGEAL REFLUX DISEASE

REACTIONS (4)
  - Sperm concentration decreased [Not Recovered/Not Resolved]
  - Fatigue [Not Recovered/Not Resolved]
  - Weight increased [Not Recovered/Not Resolved]
  - Staphylococcal infection [Not Recovered/Not Resolved]
